FAERS Safety Report 12298856 (Version 1)
Quarter: 2016Q2

REPORT INFORMATION
  Report Type: Spontaneous
  Country: CL (occurrence: CL)
  Receive Date: 20160425
  Receipt Date: 20160425
  Transmission Date: 20160815
  Serious: Yes (Life-Threatening)
  Sender: FDA-Public Use
  Company Number: CL-ASTRAZENECA-2012SE74551

PATIENT
  Sex: Female
  Weight: 10 kg

DRUGS (11)
  1. VALPROIC ACID. [Interacting]
     Active Substance: VALPROIC ACID
     Indication: ENCEPHALOPATHY
     Route: 050
  2. MEROPENEM. [Interacting]
     Active Substance: MEROPENEM
     Indication: CNS VENTRICULITIS
     Route: 042
  3. LORAZEPAM. [Concomitant]
     Active Substance: LORAZEPAM
     Indication: ENCEPHALOPATHY
  4. PHENYTOIN. [Concomitant]
     Active Substance: PHENYTOIN
     Indication: ENCEPHALOPATHY
  5. LEVETIRACETAM. [Concomitant]
     Active Substance: LEVETIRACETAM
     Indication: SEIZURE
  6. MEROPENEM. [Suspect]
     Active Substance: MEROPENEM
     Indication: ENTEROBACTER INFECTION
     Route: 042
  7. VALPROIC ACID. [Interacting]
     Active Substance: VALPROIC ACID
     Indication: SEIZURE
     Route: 050
  8. VALPROIC ACID. [Interacting]
     Active Substance: VALPROIC ACID
     Indication: SEIZURE
     Route: 050
  9. VALPROIC ACID. [Interacting]
     Active Substance: VALPROIC ACID
     Indication: ENCEPHALOPATHY
     Route: 050
  10. PHENOBARBITAL. [Concomitant]
     Active Substance: PHENOBARBITAL
     Indication: EPILEPSY
  11. PHENOBARBITAL. [Concomitant]
     Active Substance: PHENOBARBITAL
     Indication: ENCEPHALOPATHY

REACTIONS (2)
  - Drug level decreased [Recovered/Resolved]
  - Drug interaction [Recovered/Resolved]
